FAERS Safety Report 12737441 (Version 5)
Quarter: 2016Q4

REPORT INFORMATION
  Report Type: Report from Study
  Country: US (occurrence: US)
  Receive Date: 20160912
  Receipt Date: 20161107
  Transmission Date: 20170207
  Serious: Yes (Life-Threatening, Hospitalization)
  Sender: FDA-Public Use
  Company Number: US-BAYER-2016-162636

PATIENT
  Age: 56 Year
  Sex: Male
  Weight: 76 kg

DRUGS (40)
  1. RIOCIGUAT (GUANYLATE CYCLASE STIMULATOR) [Suspect]
     Active Substance: RIOCIGUAT
     Indication: PULMONARY HYPERTENSION
     Dosage: 2 MG, TID
     Route: 048
     Dates: start: 20160816, end: 20160818
  2. CRESTOR [Concomitant]
     Active Substance: ROSUVASTATIN CALCIUM
     Dosage: 40 MG, QPM
     Route: 048
  3. LASIX [Concomitant]
     Active Substance: FUROSEMIDE
     Dosage: UNK
     Dates: end: 20160825
  4. LOPID [Concomitant]
     Active Substance: GEMFIBROZIL
     Dosage: 600 MG, UNK
  5. TYLENOL [Concomitant]
     Active Substance: ACETAMINOPHEN
  6. GLUCAGEN [Concomitant]
     Active Substance: GLUCAGON HYDROCHLORIDE
  7. LOVAZA [Concomitant]
     Active Substance: OMEGA-3-ACID ETHYL ESTERS
     Dosage: 1 G, UNK
  8. RIOCIGUAT (GUANYLATE CYCLASE STIMULATOR) [Suspect]
     Active Substance: RIOCIGUAT
     Indication: PULMONARY HYPERTENSION
     Dosage: 2 MG, BID
     Route: 048
     Dates: start: 20160824, end: 20160825
  9. COREG [Concomitant]
     Active Substance: CARVEDILOL
     Dosage: 6.25 MG,
     Route: 048
  10. EZETIMIBE. [Concomitant]
     Active Substance: EZETIMIBE
     Dosage: 10 MG, QHS
     Route: 048
  11. TUMS [Concomitant]
     Active Substance: CALCIUM CARBONATE
  12. DEXTROSE. [Concomitant]
     Active Substance: DEXTROSE
  13. LANTUS [Concomitant]
     Active Substance: INSULIN GLARGINE
  14. ASPIRIN. [Concomitant]
     Active Substance: ASPIRIN
     Dosage: DAILY DOSE 81 MG
     Route: 048
  15. ROPINIROLE. [Concomitant]
     Active Substance: ROPINIROLE
     Dosage: 2 MG, BID
     Route: 048
  16. AMBIEN [Concomitant]
     Active Substance: ZOLPIDEM TARTRATE
     Dosage: 10 MG, QHS
     Route: 048
  17. NOVOLOG [Concomitant]
     Active Substance: INSULIN ASPART
     Dosage: 1-5 UNITS
  18. FLEXERIL [Concomitant]
     Active Substance: CYCLOBENZAPRINE HYDROCHLORIDE
     Indication: MUSCLE SPASMS
     Dosage: 10 MG, BID
     Route: 048
  19. INSPRA [Concomitant]
     Active Substance: EPLERENONE
     Dosage: 25 MG, QHS
     Route: 048
  20. DULCOLAX (BISACODYL) [Concomitant]
     Active Substance: BISACODYL
  21. RIOCIGUAT (GUANYLATE CYCLASE STIMULATOR) [Suspect]
     Active Substance: RIOCIGUAT
     Indication: PULMONARY HYPERTENSION
     Dosage: EXT
     Dates: start: 20110518
  22. RIOCIGUAT (GUANYLATE CYCLASE STIMULATOR) [Suspect]
     Active Substance: RIOCIGUAT
     Indication: LEFT VENTRICULAR DYSFUNCTION
     Dosage: 2 MG, TID
     Route: 048
     Dates: start: 20110615
  23. RIOCIGUAT (GUANYLATE CYCLASE STIMULATOR) [Suspect]
     Active Substance: RIOCIGUAT
     Indication: PULMONARY HYPERTENSION
     Dosage: 1 MG, TID
     Route: 048
  24. FENOFIBRATE. [Concomitant]
     Active Substance: FENOFIBRATE
     Dosage: 201 MG, QAM W/BREAKFAST
     Route: 048
  25. GABAPENTIN. [Concomitant]
     Active Substance: GABAPENTIN
     Dosage: 100 MG, TID
     Route: 048
  26. VALSARTAN. [Concomitant]
     Active Substance: VALSARTAN
  27. COLACE [Concomitant]
     Active Substance: DOCUSATE SODIUM
  28. JANUMET [Concomitant]
     Active Substance: METFORMIN HYDROCHLORIDE\SITAGLIPTIN PHOSPHATE
  29. NIASPAN [Concomitant]
     Active Substance: NIACIN
     Dosage: 500 MG, UNK
  30. CLOPIDOGREL [Concomitant]
     Active Substance: CLOPIDOGREL BISULFATE
     Dosage: DAILY DOSE 75 MG
     Route: 048
  31. LANOXIN [Concomitant]
     Active Substance: DIGOXIN
     Dosage: 125 ?G, QAM
     Route: 048
  32. REQUIP [Concomitant]
     Active Substance: ROPINIROLE HYDROCHLORIDE
  33. ZANTAC [Concomitant]
     Active Substance: RANITIDINE HYDROCHLORIDE
     Dosage: 150 MG, UNK
  34. COREG [Concomitant]
     Active Substance: CARVEDILOL
     Dosage: 12.5 MG, Q12H SCH
     Route: 048
     Dates: end: 20160825
  35. FAMOTIDINE. [Concomitant]
     Active Substance: FAMOTIDINE
     Dosage: 20 MG, Q12H SCH
     Route: 048
  36. GLIPIZIDE. [Concomitant]
     Active Substance: GLIPIZIDE
     Dosage: 5 MG, BID
     Route: 048
  37. SODIUM CHLORIDE. [Concomitant]
     Active Substance: SODIUM CHLORIDE
     Dosage: 75 ML/H
     Dates: start: 20160816
  38. ZOFRAN [Concomitant]
     Active Substance: ONDANSETRON HYDROCHLORIDE
  39. JANUVIA [Concomitant]
     Active Substance: SITAGLIPTIN PHOSPHATE
     Dosage: DAILY DOSE 100 MG
     Route: 048
  40. GLUCOPHAGE [Concomitant]
     Active Substance: METFORMIN HYDROCHLORIDE
     Dosage: 500 MG, UNK

REACTIONS (2)
  - Cerebrovascular accident [Recovering/Resolving]
  - Hypotension [Recovered/Resolved]

NARRATIVE: CASE EVENT DATE: 20160816
